FAERS Safety Report 7444993-7 (Version None)
Quarter: 2011Q2

REPORT INFORMATION
  Report Type: 
  Country: None (occurrence: None)
  Receive Date: 20110427
  Receipt Date: 20110427
  Transmission Date: 20111010
  Serious: Yes (Hospitalization)
  Sender: FDA-Public Use
  Company Number: None

PATIENT
  Age: 65 Year
  Sex: Female
  Weight: 63.5036 kg

DRUGS (2)
  1. RIBAVIRIN [Suspect]
     Indication: HEPATITIS C
     Dosage: 400 MG BID PO
     Route: 048
     Dates: start: 20061007, end: 20061027
  2. INTERFERON ALFA [Suspect]
     Indication: HEPATITIS C
     Dosage: IM
     Route: 030
     Dates: start: 20061007, end: 20061027

REACTIONS (12)
  - MUSCULAR WEAKNESS [None]
  - HAEMATOCRIT DECREASED [None]
  - ALANINE AMINOTRANSFERASE INCREASED [None]
  - BLOOD BILIRUBIN DECREASED [None]
  - HAEMOLYTIC ANAEMIA [None]
  - ACTIVATED PARTIAL THROMBOPLASTIN TIME PROLONGED [None]
  - HAEMOGLOBIN DECREASED [None]
  - DYSPNOEA EXERTIONAL [None]
  - DIZZINESS [None]
  - PALPITATIONS [None]
  - INTERNATIONAL NORMALISED RATIO DECREASED [None]
  - ASPARTATE AMINOTRANSFERASE INCREASED [None]
